FAERS Safety Report 20919680 (Version 5)
Quarter: 2022Q3

REPORT INFORMATION
  Report Type: Spontaneous
  Country: IT (occurrence: None)
  Receive Date: 20220606
  Receipt Date: 20220704
  Transmission Date: 20221027
  Serious: No
  Sender: FDA-Public Use
  Company Number: IT-ROCHE-3108695

PATIENT
  Age: 18 Year
  Sex: Male

DRUGS (1)
  1. RISDIPLAM [Suspect]
     Active Substance: RISDIPLAM
     Indication: Spinal muscular atrophy
     Dosage: EXPIRY DATE TEXT FEB-2023
     Route: 048
     Dates: start: 20211203

REACTIONS (4)
  - Product taste abnormal [Unknown]
  - Product packaging quantity issue [Unknown]
  - Product preparation error [Unknown]
  - No adverse event [Unknown]
